FAERS Safety Report 9676096 (Version 2)
Quarter: 2013Q4

REPORT INFORMATION
  Report Type: Spontaneous
  Country: US (occurrence: US)
  Receive Date: 20131107
  Receipt Date: 20131125
  Transmission Date: 20140711
  Serious: Yes (Death, Other)
  Sender: FDA-Public Use
  Company Number: US-GILEAD-2013-0087088

PATIENT
  Sex: Female

DRUGS (5)
  1. LETAIRIS [Suspect]
     Indication: PULMONARY HYPERTENSION
     Dosage: 2.5 MG, QD
     Route: 048
     Dates: end: 2013
  2. LETAIRIS [Suspect]
     Indication: SCLERODERMA
     Dosage: 5 MG, QD
     Route: 048
     Dates: start: 20130416, end: 2013
  3. LETAIRIS [Suspect]
     Indication: INTERSTITIAL LUNG DISEASE
  4. REMODULIN [Concomitant]
     Indication: PULMONARY HYPERTENSION
     Dosage: 101 ?G/KG, CYCLICAL
     Dates: start: 20121218, end: 20131025
  5. ADCIRCA [Concomitant]
     Indication: PULMONARY HYPERTENSION

REACTIONS (2)
  - Interstitial lung disease [Fatal]
  - Sinus congestion [Unknown]
